FAERS Safety Report 9550545 (Version 2)
Quarter: 2014Q2

REPORT INFORMATION
  Report Type: Spontaneous
  Country: US (occurrence: US)
  Receive Date: 20130924
  Receipt Date: 20140402
  Transmission Date: 20141212
  Serious: No
  Sender: FDA-Public Use
  Company Number: US-SANOFI-AVENTIS-2013SA031273

PATIENT
  Age: 61 Year
  Sex: Female
  Weight: 111.58 kg

DRUGS (8)
  1. AUBAGIO [Suspect]
     Indication: MULTIPLE SCLEROSIS
     Route: 048
     Dates: start: 20130207
  2. AUBAGIO [Suspect]
     Indication: MULTIPLE SCLEROSIS
     Route: 048
     Dates: start: 2012
  3. AUBAGIO [Suspect]
     Indication: MULTIPLE SCLEROSIS
     Route: 048
     Dates: start: 201305
  4. HYDROCHLOROTHIAZIDE [Concomitant]
     Indication: HYPERTENSION
  5. HYDROCHLOROTHIAZIDE [Concomitant]
     Indication: HYPERTENSION
  6. AMITRIPTYLINE HYDROCHLORIDE [Concomitant]
     Indication: HEADACHE
     Dosage: 1 TABLET
     Dates: start: 20130227
  7. BUTALB ACETAMIN [Concomitant]
     Indication: HEADACHE
     Dosage: 1 TABLET
     Dates: start: 20121120
  8. CYCLOBENZAPRINE [Concomitant]
     Indication: HEADACHE
     Dosage: 1 TABLET
     Dates: start: 20130227

REACTIONS (9)
  - Balance disorder [Not Recovered/Not Resolved]
  - Somnolence [Not Recovered/Not Resolved]
  - Cough [Unknown]
  - Hyperhidrosis [Unknown]
  - Eye disorder [Unknown]
  - Hepatic enzyme increased [Unknown]
  - Alopecia [Not Recovered/Not Resolved]
  - Drug dose omission [Unknown]
  - Alanine aminotransferase increased [Unknown]
